FAERS Safety Report 8989081 (Version 1)
Quarter: 2012Q4

REPORT INFORMATION
  Report Type: Spontaneous
  Country: FR (occurrence: None)
  Receive Date: 20121218
  Receipt Date: 20121218
  Transmission Date: 20130627
  Serious: Yes (Hospitalization)
  Sender: FDA-Public Use
  Company Number: FR-010327

PATIENT
  Age: 81 Year
  Sex: Female

DRUGS (1)
  1. PICOPREP [Suspect]
     Indication: BOWEL PREPARATION
     Dosage: (2 DF,2 sachets )
     Route: 048
     Dates: start: 201212, end: 001212

REACTIONS (5)
  - Coma [None]
  - Asthenia [None]
  - Convulsion [None]
  - Hyponatraemia [None]
  - Hypokalaemia [None]
